FAERS Safety Report 8805854 (Version 1)
Quarter: 2012Q4

REPORT INFORMATION
  Report Type: 
  Country: NL (occurrence: NL)
  Receive Date: 20120925
  Receipt Date: 20120925
  Transmission Date: 20130627
  Serious: Yes (Hospitalization)
  Sender: FDA-Public Use
  Company Number: NL-AMGEN-NLDSP2012059649

PATIENT
  Age: 55 Year
  Sex: Male

DRUGS (3)
  1. ENBREL [Suspect]
     Indication: PSORIATIC ARTHROPATHY
     Dosage: 50 mg, 2x/day
     Route: 065
     Dates: start: 20110816
  2. ENBREL [Suspect]
     Dosage: 50 mg, weekly
  3. ANTICHOLINERGICS [Concomitant]
     Dosage: UNK

REACTIONS (1)
  - Proteinuria [Unknown]
